FAERS Safety Report 6683181-9 (Version None)
Quarter: 2010Q2

REPORT INFORMATION
  Report Type: 
  Country: None (occurrence: None)
  Receive Date: 20100415
  Receipt Date: 20100405
  Transmission Date: 20101027
  Serious: No
  Sender: FDA-Public Use
  Company Number: US-ROXANE LABORATORIES, INC.-2010-RO-00414RO

PATIENT
  Sex: Male

DRUGS (5)
  1. METHADONE HCL [Suspect]
  2. AMBIEN [Suspect]
  3. OXYCONTIN [Suspect]
  4. SOMA [Suspect]
  5. MS CONTIN [Suspect]

REACTIONS (1)
  - SOMNOLENCE [None]
